FAERS Safety Report 26109089 (Version 1)
Quarter: 2025Q4

REPORT INFORMATION
  Report Type: Spontaneous
  Country: CN (occurrence: CN)
  Receive Date: 20251201
  Receipt Date: 20251201
  Transmission Date: 20260118
  Serious: Yes (Hospitalization)
  Sender: MYLAN
  Company Number: CN-MYLANLABS-2025M1100305

PATIENT
  Age: 14 Year
  Sex: Female
  Weight: 45 kg

DRUGS (4)
  1. ZOLOFT [Suspect]
     Active Substance: SERTRALINE HYDROCHLORIDE
     Indication: Intentional self-injury
     Dosage: 1 DOSAGE FORM, QD
     Dates: start: 20251112, end: 20251112
  2. ZOLOFT [Suspect]
     Active Substance: SERTRALINE HYDROCHLORIDE
     Indication: Affective disorder
  3. OXAZEPAM [Suspect]
     Active Substance: OXAZEPAM
     Indication: Intentional self-injury
     Dosage: 12 DOSAGE FORM, QD
     Dates: start: 20251112, end: 20251112
  4. OXAZEPAM [Suspect]
     Active Substance: OXAZEPAM
     Indication: Affective disorder

REACTIONS (1)
  - Toxicity to various agents [Recovering/Resolving]

NARRATIVE: CASE EVENT DATE: 20251112
